FAERS Safety Report 9534255 (Version 2)
Quarter: 2013Q4

REPORT INFORMATION
  Report Type: Spontaneous
  Country: US (occurrence: US)
  Receive Date: 20130918
  Receipt Date: 20131115
  Transmission Date: 20140711
  Serious: Yes (Death)
  Sender: FDA-Public Use
  Company Number: US-GLAXOSMITHKLINE-A1041798A

PATIENT
  Age: 62 Year
  Sex: Male

DRUGS (5)
  1. VOTRIENT [Suspect]
     Indication: MALIGNANT URINARY TRACT NEOPLASM
     Dosage: 800MG PER DAY
     Route: 048
     Dates: start: 20130819
  2. MULTIVITAMIN [Concomitant]
  3. CARVEDILOL [Concomitant]
  4. DIALYVITE [Concomitant]
  5. CALCIUM [Concomitant]

REACTIONS (1)
  - Death [Fatal]
